FAERS Safety Report 16283832 (Version 3)
Quarter: 2019Q3

REPORT INFORMATION
  Report Type: Report from Study
  Country: US (occurrence: US)
  Receive Date: 20190507
  Receipt Date: 20190927
  Transmission Date: 20191004
  Serious: No
  Sender: FDA-Public Use
  Company Number: PHEH2019US019201

PATIENT
  Age: 63 Year
  Sex: Female

DRUGS (3)
  1. COSENTYX [Suspect]
     Active Substance: SECUKINUMAB
     Dosage: 300 MG, QMO
     Route: 058
  2. DIFLUCAN [Concomitant]
     Active Substance: FLUCONAZOLE
     Indication: NAIL DISCOLOURATION
     Route: 065
  3. COSENTYX [Suspect]
     Active Substance: SECUKINUMAB
     Indication: PSORIASIS
     Dosage: 300 MG, QW
     Route: 058
     Dates: start: 20190426

REACTIONS (4)
  - Nail disorder [Unknown]
  - Arthralgia [Recovered/Resolved]
  - Swelling [Unknown]
  - Fungal infection [Unknown]

NARRATIVE: CASE EVENT DATE: 20190426
